FAERS Safety Report 13756297 (Version 1)
Quarter: 2017Q3

REPORT INFORMATION
  Report Type: Spontaneous
  Country: US (occurrence: US)
  Receive Date: 20170714
  Receipt Date: 20170714
  Transmission Date: 20171127
  Serious: Yes (Other)
  Sender: FDA-Public Use
  Company Number: US-JNJFOC-20170706452

PATIENT
  Age: 49 Year
  Sex: Male

DRUGS (10)
  1. LOTRIMIN ULTRA [Concomitant]
     Active Substance: BUTENAFINE HYDROCHLORIDE
     Indication: SKIN DISORDER
     Route: 061
     Dates: start: 20150713
  2. ACETAMINOPHEN. [Concomitant]
     Active Substance: ACETAMINOPHEN
     Dosage: EVERY 4-6 HOURS, MAX 2 PER DAY
     Route: 065
     Dates: start: 20170222
  3. METAMUCIL [Concomitant]
     Active Substance: PLANTAGO SEED
     Route: 048
  4. PREDNISONE. [Concomitant]
     Active Substance: PREDNISONE
     Route: 065
  5. IMURAN [Concomitant]
     Active Substance: AZATHIOPRINE
     Route: 048
     Dates: start: 20161115
  6. REMICADE [Suspect]
     Active Substance: INFLIXIMAB
     Indication: CROHN^S DISEASE
     Route: 042
     Dates: start: 201302
  7. IMURAN [Concomitant]
     Active Substance: AZATHIOPRINE
     Route: 048
  8. HYDROCODONE [Concomitant]
     Active Substance: HYDROCODONE
     Dosage: EVERY 4-6 HOURS, MAX 2 PER DAY
     Route: 048
     Dates: start: 20170222
  9. REMICADE [Suspect]
     Active Substance: INFLIXIMAB
     Indication: CROHN^S DISEASE
     Route: 042
     Dates: start: 20161202
  10. REMICADE [Suspect]
     Active Substance: INFLIXIMAB
     Indication: CROHN^S DISEASE
     Route: 042
     Dates: start: 201611

REACTIONS (8)
  - Crohn^s disease [Unknown]
  - Off label use [Unknown]
  - Anal fistula [Unknown]
  - Product use issue [Unknown]
  - Haemorrhoids [Unknown]
  - Drug level below therapeutic [Unknown]
  - Weight decreased [Unknown]
  - Vitamin B12 deficiency [Unknown]

NARRATIVE: CASE EVENT DATE: 201302
